FAERS Safety Report 18000948 (Version 2)
Quarter: 2020Q3

REPORT INFORMATION
  Report Type: Spontaneous
  Country: US (occurrence: US)
  Receive Date: 20200709
  Receipt Date: 20200709
  Transmission Date: 20201103
  Serious: Yes (Death, Other)
  Sender: FDA-Public Use
  Company Number: US-ENDO PHARMACEUTICALS INC-2020-004335

PATIENT
  Age: 28 Year

DRUGS (2)
  1. PERCOCET [Suspect]
     Active Substance: ACETAMINOPHEN\OXYCODONE HYDROCHLORIDE
     Indication: PRODUCT USED FOR UNKNOWN INDICATION
     Dosage: UNK UNKNOWN, UNKNOWN
     Route: 048
  2. SOMA [Suspect]
     Active Substance: CARISOPRODOL
     Indication: PRODUCT USED FOR UNKNOWN INDICATION
     Dosage: UNK UNKNOWN, UNKNOWN
     Route: 048

REACTIONS (11)
  - Death [Fatal]
  - Hyperglycaemia [Unknown]
  - Coma [Unknown]
  - Tachycardia [Unknown]
  - Respiratory arrest [Unknown]
  - Liver function test abnormal [Unknown]
  - Pyrexia [Unknown]
  - Blood creatinine increased [Unknown]
  - Pulseless electrical activity [Unknown]
  - Hyperthermia [Unknown]
  - Acidosis [Unknown]

NARRATIVE: CASE EVENT DATE: 201102
